FAERS Safety Report 21935095 (Version 1)
Quarter: 2023Q1

REPORT INFORMATION
  Report Type: Spontaneous
  Country: CN (occurrence: CN)
  Receive Date: 20230201
  Receipt Date: 20230201
  Transmission Date: 20230418
  Serious: Yes (Hospitalization, Other)
  Sender: FDA-Public Use
  Company Number: CN-MLMSERVICE-20230123-4048641-1

PATIENT
  Age: 12 Year
  Sex: Male

DRUGS (1)
  1. METHOTREXATE [Suspect]
     Active Substance: METHOTREXATE
     Indication: Dermatomyositis
     Route: 048

REACTIONS (5)
  - Pyelitis [Recovered/Resolved]
  - Pelvi-ureteric obstruction [Recovered/Resolved]
  - Urinary tract infection staphylococcal [Recovered/Resolved]
  - Hydronephrosis [Recovered/Resolved]
  - Ureterolithiasis [Recovered/Resolved]
